FAERS Safety Report 7493970-9 (Version None)
Quarter: 2011Q2

REPORT INFORMATION
  Report Type: 
  Country: None (occurrence: None)
  Receive Date: 20110520
  Receipt Date: 20110510
  Transmission Date: 20111010
  Serious: Yes (Hospitalization)
  Sender: FDA-Public Use
  Company Number: BR-MEDIMMUNE-MEDI-0013191

PATIENT
  Sex: Male
  Weight: 7.78 kg

DRUGS (3)
  1. SYNAGIS [Suspect]
     Indication: BRONCHOPULMONARY DYSPLASIA
     Route: 030
     Dates: start: 20100525
  2. GEVITAL [Concomitant]
     Route: 048
     Dates: start: 20100516
  3. FERRIC HYDROXIDE POLYMALTOSE COMPLEX [Concomitant]
     Route: 048
     Dates: start: 20100516

REACTIONS (7)
  - SNEEZING [None]
  - PYREXIA [None]
  - COUGH [None]
  - OXYGEN SATURATION DECREASED [None]
  - FATIGUE [None]
  - PO2 DECREASED [None]
  - BRONCHIOLITIS [None]
